FAERS Safety Report 5473265-5 (Version None)
Quarter: 2007Q4

REPORT INFORMATION
  Report Type: 
  Country: None (occurrence: None)
  Receive Date: 20071001
  Receipt Date: 20070919
  Transmission Date: 20080405
  Serious: Yes (Death)
  Sender: FDA-Public Use
  Company Number: US-ROCHE-519028

PATIENT
  Age: 83 Year
  Sex: Female

DRUGS (1)
  1. BONIVA [Suspect]
     Indication: OSTEOPOROSIS
     Dosage: PATIENT TOOK TWO DOSES (AMOUNT AND FORMULATION NOT PROVIDED)OF IBANDRONIC ACID OVER AN UNSPECIFIED +
     Route: 065
     Dates: end: 20070723

REACTIONS (3)
  - ABDOMINAL PAIN UPPER [None]
  - CARDIAC DISORDER [None]
  - INFLUENZA [None]
